FAERS Safety Report 4619566-1 (Version None)
Quarter: 2005Q2

REPORT INFORMATION
  Report Type: 
  Country: None (occurrence: None)
  Receive Date: 20050321
  Receipt Date: 20040527
  Transmission Date: 20051028
  Serious: Yes (Other)
  Sender: FDA-Public Use
  Company Number: 2004-05-2212

PATIENT
  Age: 48 Year
  Sex: Male
  Weight: 89.3586 kg

DRUGS (4)
  1. PEG-INTRON [Suspect]
     Indication: HEPATITIS C
     Dosage: 150 MCG QW SUBCUTANEOUS
     Route: 058
     Dates: start: 20040513, end: 20040527
  2. REBETOL [Suspect]
     Indication: HEPATITIS C
     Dosage: 1000 MG QD ORAL
     Route: 048
     Dates: start: 20040513, end: 20040527
  3. AMBIEN [Concomitant]
  4. LISINOPRIL [Concomitant]

REACTIONS (7)
  - ANXIETY [None]
  - CONFUSIONAL STATE [None]
  - DISTURBANCE IN ATTENTION [None]
  - INSOMNIA [None]
  - PARANOIA [None]
  - PSYCHOTIC DISORDER [None]
  - SUICIDAL IDEATION [None]
